FAERS Safety Report 9190575 (Version 1)
Quarter: 2013Q1

REPORT INFORMATION
  Report Type: Spontaneous
  Country: ES (occurrence: ES)
  Receive Date: 20130326
  Receipt Date: 20130326
  Transmission Date: 20140127
  Serious: Yes (Life-Threatening, Hospitalization)
  Sender: FDA-Public Use
  Company Number: ES-ROCHE-1206349

PATIENT
  Age: 10 Year
  Sex: Female

DRUGS (2)
  1. XOLAIR [Suspect]
     Indication: ASTHMA
     Route: 058
     Dates: start: 20120903, end: 20130311
  2. SINGULAIR [Concomitant]

REACTIONS (2)
  - Haematoma [Recovering/Resolving]
  - Thrombocytopenia [Recovering/Resolving]
